FAERS Safety Report 4484830-6 (Version None)
Quarter: 2004Q4

REPORT INFORMATION
  Report Type: 
  Country: None (occurrence: None)
  Receive Date: 20041025
  Receipt Date: 20040512
  Transmission Date: 20050328
  Serious: Yes (Life-Threatening, Hospitalization)
  Sender: FDA-Public Use
  Company Number: JP-MERCK-0405USA01088

PATIENT
  Age: 56 Year
  Sex: Male
  Weight: 65 kg

DRUGS (14)
  1. PRIMAXIN [Suspect]
     Indication: UPPER RESPIRATORY TRACT INFLAMMATION
     Route: 041
     Dates: start: 20040419, end: 20040419
  2. PRIMAXIN [Suspect]
     Route: 041
     Dates: start: 20040408, end: 20040408
  3. SINGULAIR [Concomitant]
     Route: 048
     Dates: start: 20040306, end: 20040408
  4. SINGULAIR [Concomitant]
     Route: 048
     Dates: start: 20020521, end: 20040305
  5. PRIMAXIN [Suspect]
     Route: 041
     Dates: start: 20001117, end: 20001117
  6. PRIMAXIN [Suspect]
     Route: 041
     Dates: start: 20010224, end: 20010224
  7. PRIMAXIN [Suspect]
     Route: 041
     Dates: start: 20010307, end: 20010307
  8. PRIMAXIN [Suspect]
     Route: 041
     Dates: start: 20010319, end: 20010319
  9. PRIMAXIN [Suspect]
     Route: 041
     Dates: start: 20010330, end: 20010330
  10. PRIMAXIN [Suspect]
     Route: 041
     Dates: start: 20010810, end: 20010810
  11. PRIMAXIN [Suspect]
     Route: 041
     Dates: start: 20040129, end: 20040129
  12. THEOPHYLLINE [Concomitant]
     Route: 048
     Dates: start: 20001118, end: 20040408
  13. PREDNISOLONE [Concomitant]
     Route: 048
     Dates: start: 20010330
  14. PREDNISOLONE [Concomitant]
     Route: 048
     Dates: end: 20020520

REACTIONS (16)
  - ANAPHYLACTIC SHOCK [None]
  - ARTERIOSPASM CORONARY [None]
  - ASPARTATE AMINOTRANSFERASE INCREASED [None]
  - BLOOD ALKALINE PHOSPHATASE INCREASED [None]
  - BLOOD LACTATE DEHYDROGENASE INCREASED [None]
  - ELECTROCARDIOGRAM ST SEGMENT DEPRESSION [None]
  - EOSINOPHIL COUNT DECREASED [None]
  - GAMMA-GLUTAMYLTRANSFERASE INCREASED [None]
  - HEART RATE INCREASED [None]
  - LARYNGOTRACHEITIS [None]
  - LOSS OF CONSCIOUSNESS [None]
  - NEUTROPHIL COUNT INCREASED [None]
  - PROTEIN TOTAL DECREASED [None]
  - T-LYMPHOCYTE COUNT DECREASED [None]
  - VOMITING [None]
  - WHITE BLOOD CELL COUNT INCREASED [None]
